FAERS Safety Report 7580424-4 (Version None)
Quarter: 2011Q2

REPORT INFORMATION
  Report Type: 
  Country: None (occurrence: None)
  Receive Date: 20110629
  Receipt Date: 20110617
  Transmission Date: 20111010
  Serious: Yes (Hospitalization, Other)
  Sender: FDA-Public Use
  Company Number: US-AMGEN-USASP2011031406

PATIENT
  Age: 45 Year
  Sex: Female

DRUGS (1)
  1. ENBREL [Suspect]
     Indication: RHEUMATOID ARTHRITIS
     Dosage: 50 MG, QWK
     Dates: start: 20081101

REACTIONS (17)
  - HEADACHE [None]
  - UPPER RESPIRATORY TRACT INFECTION [None]
  - FATIGUE [None]
  - SYNCOPE [None]
  - HEAD INJURY [None]
  - ABDOMINAL PAIN [None]
  - NERVE COMPRESSION [None]
  - DRUG INEFFECTIVE [None]
  - SENSATION OF HEAVINESS [None]
  - GASTRITIS [None]
  - LOSS OF CONSCIOUSNESS [None]
  - HYPERTENSION [None]
  - ARTHRALGIA [None]
  - OEDEMA PERIPHERAL [None]
  - DIARRHOEA [None]
  - LIVER DISORDER [None]
  - INJECTION SITE PAIN [None]
